FAERS Safety Report 17429279 (Version 1)
Quarter: 2020Q1

REPORT INFORMATION
  Report Type: Spontaneous
  Country: US (occurrence: US)
  Receive Date: 20200131
  Receipt Date: 20200131
  Transmission Date: 20200409
  Serious: No
  Sender: FDA-Public Use
  Company Number: None

PATIENT

DRUGS (3)
  1. SYRINGE [Suspect]
     Active Substance: DEVICE
  2. INSULIN [Suspect]
     Active Substance: INSULIN NOS
  3. SYRINGE [Suspect]
     Active Substance: DEVICE

REACTIONS (2)
  - Product availability issue [None]
  - Syringe issue [None]
